FAERS Safety Report 9199884 (Version 1)
Quarter: 2013Q1

REPORT INFORMATION
  Report Type: Spontaneous
  Country: US (occurrence: US)
  Receive Date: 20130329
  Receipt Date: 20130329
  Transmission Date: 20140127
  Serious: Yes (Hospitalization)
  Sender: FDA-Public Use
  Company Number: US-BAXTER-2013BAX009035

PATIENT
  Age: 66 Year
  Sex: Male

DRUGS (6)
  1. DIANEAL LOW CALCIUM [Suspect]
     Indication: PERITONEAL DIALYSIS
     Route: 033
     Dates: start: 201110, end: 201205
  2. DIANEAL LOW CALCIUM [Suspect]
     Route: 033
     Dates: start: 20120730, end: 20130131
  3. DIANEAL LOW CALCIUM [Suspect]
     Route: 033
     Dates: start: 20130316
  4. DIANEAL LOW CALCIUM [Suspect]
     Indication: PERITONEAL DIALYSIS
     Route: 033
     Dates: start: 201110, end: 201205
  5. DIANEAL LOW CALCIUM [Suspect]
     Route: 033
     Dates: start: 20120730, end: 20130131
  6. DIANEAL LOW CALCIUM [Suspect]
     Route: 033
     Dates: start: 20130316

REACTIONS (3)
  - Renal failure [Recovered/Resolved]
  - Iatrogenic injury [Recovered/Resolved]
  - Transplant failure [Recovered/Resolved]
